FAERS Safety Report 5025853-8 (Version None)
Quarter: 2006Q2

REPORT INFORMATION
  Report Type: 
  Country: None (occurrence: None)
  Receive Date: 20060614
  Receipt Date: 20050825
  Transmission Date: 20061013
  Serious: Yes (Other)
  Sender: FDA-Public Use
  Company Number: US-AVENTIS-200519108US

PATIENT
  Sex: Female

DRUGS (1)
  1. CLOMID [Suspect]
     Indication: INFERTILITY
     Dates: start: 20050805, end: 20050809

REACTIONS (3)
  - ABORTION MISSED [None]
  - ABORTION SPONTANEOUS [None]
  - DRUG EXPOSURE DURING PREGNANCY [None]
